FAERS Safety Report 11779961 (Version 1)
Quarter: 2015Q4

REPORT INFORMATION
  Report Type: Report from Study
  Country: US (occurrence: US)
  Receive Date: 20151125
  Receipt Date: 20151125
  Transmission Date: 20160304
  Serious: No
  Sender: FDA-Public Use
  Company Number: US-AMGEN-USASL2015122989

PATIENT
  Age: 60 Year
  Sex: Female

DRUGS (1)
  1. ENBREL [Suspect]
     Active Substance: ETANERCEPT
     Indication: ANKYLOSING SPONDYLITIS
     Dosage: UNK UNK, QWK
     Route: 065
     Dates: start: 2006

REACTIONS (6)
  - Injection site pain [Unknown]
  - Injection site urticaria [Unknown]
  - Device issue [Unknown]
  - Injection site reaction [Unknown]
  - Injection site discolouration [Unknown]
  - Injection site erythema [Unknown]
